FAERS Safety Report 8005245-X (Version None)
Quarter: 2011Q4

REPORT INFORMATION
  Report Type: 
  Country: None (occurrence: None)
  Receive Date: 20111223
  Receipt Date: 20111220
  Transmission Date: 20120403
  Serious: Yes (Other)
  Sender: FDA-Public Use
  Company Number: PHHY2010CA48414

PATIENT
  Sex: Female

DRUGS (15)
  1. NORVASC [Concomitant]
     Dosage: 2.5 MG, UNK
  2. LIPITOR [Concomitant]
     Dosage: 20 MG, UNK
  3. ACETAMINOPHEN [Concomitant]
     Dosage: 650 MG, UNK
  4. ZOLOFT [Concomitant]
     Dosage: 50 MG, UNK
  5. ZOLEDRONOC ACID [Suspect]
     Indication: OSTEOPOROSIS
     Dosage: 5 MG, UNK
     Route: 042
     Dates: start: 20081125
  6. SENOKOT [Concomitant]
     Dosage: 8.6 MG, UNK
  7. ZOLEDRONOC ACID [Suspect]
     Dosage: UNK UKN, UNK
     Dates: start: 20101102
  8. ZOLEDRONOC ACID [Suspect]
     Dosage: UNK UKN, UNK
     Dates: start: 20111122
  9. LACTAID [Concomitant]
  10. COLACE [Concomitant]
     Dosage: 100 MG, UNK
  11. ZOLEDRONOC ACID [Suspect]
     Dosage: UNK UKN, UNK
     Dates: start: 20091102
  12. PLAVIX [Concomitant]
     Dosage: 75 MG, UNK
  13. LOPRESSOR [Concomitant]
     Dosage: 100 MG, UNK
  14. PERINDOPRIL ERBUMINE [Concomitant]
     Dosage: 18 MG, UNK
  15. PANTOPRAZOLE SODIUM [Concomitant]
     Dosage: 40 MG, UNK

REACTIONS (8)
  - INTERVERTEBRAL DISC PROTRUSION [None]
  - BLOOD PRESSURE INCREASED [None]
  - MUSCULAR WEAKNESS [None]
  - ABDOMINAL HERNIA [None]
  - ARTHRALGIA [None]
  - PAIN IN EXTREMITY [None]
  - ABASIA [None]
  - HYPOAESTHESIA [None]
